FAERS Safety Report 8317783-0 (Version None)
Quarter: 2012Q2

REPORT INFORMATION
  Report Type: 
  Country: None (occurrence: None)
  Receive Date: 20120427
  Receipt Date: 20120425
  Transmission Date: 20120825
  Serious: Yes (Disabling)
  Sender: FDA-Public Use
  Company Number: GB-PFIZER INC-2012051887

PATIENT
  Age: 47 Year
  Sex: Male
  Weight: 96.9 kg

DRUGS (28)
  1. BISOPROLOL [Concomitant]
     Dosage: UNK
     Dates: start: 20111110, end: 20111208
  2. BISOPROLOL [Concomitant]
     Dosage: UNK
     Dates: start: 20111213, end: 20120208
  3. LAXIDO [Concomitant]
     Dosage: UNK
     Dates: start: 20111110, end: 20111208
  4. RAMIPRIL [Concomitant]
     Dosage: UNK
     Dates: start: 20111110, end: 20111208
  5. RAMIPRIL [Concomitant]
     Dosage: UNK
     Dates: start: 20111213, end: 20120208
  6. SIMVASTATIN [Concomitant]
     Dosage: UNK
     Dates: start: 20111110, end: 20111208
  7. ACETYLSALICYLIC ACID [Concomitant]
     Dosage: UNK
     Dates: start: 20111110, end: 20111208
  8. ACETYLSALICYLIC ACID [Concomitant]
     Dosage: UNK
     Dates: start: 20111213, end: 20120208
  9. CINCHOCAINE [Concomitant]
     Dosage: UNK
     Dates: start: 20111125, end: 20111205
  10. OMEPRAZOLE [Concomitant]
     Dosage: UNK
     Dates: start: 20111213, end: 20120208
  11. GLYCERYL TRINITRATE [Concomitant]
     Dosage: UNK
     Dates: start: 20111213, end: 20120208
  12. LAXIDO [Concomitant]
     Dosage: UNK
     Dates: start: 20111213, end: 20120208
  13. BETAMETHASONE VALERATE [Concomitant]
     Dosage: UNK
     Dates: start: 20120117, end: 20120214
  14. GLYCEROL [Concomitant]
     Dosage: UNK
     Dates: start: 20111207, end: 20111209
  15. PROCTOSEDYL ^HOECHST^ [Concomitant]
     Dosage: UNK
     Dates: start: 20111025, end: 20111209
  16. BENDROFLUMETHIAZIDE [Concomitant]
     Dosage: UNK
     Dates: start: 20111213, end: 20120208
  17. VALPROATE SODIUM [Concomitant]
     Dosage: UNK
     Dates: start: 20111110, end: 20111208
  18. SENNA [Concomitant]
     Dosage: UNK
     Dates: start: 20111130, end: 20111228
  19. SIMVASTATIN [Concomitant]
     Dosage: UNK
     Dates: start: 20111213, end: 20120208
  20. BENDROFLUMETHIAZIDE [Concomitant]
     Dosage: UNK
     Dates: start: 20111110, end: 20111208
  21. OMEPRAZOLE [Concomitant]
     Dosage: UNK
     Dates: start: 20111110, end: 20111208
  22. PARACETAMOL [Concomitant]
     Dosage: UNK
     Dates: start: 20111110, end: 20111208
  23. PROCTOSEDYL ^HOECHST^ [Concomitant]
     Dosage: UNK
     Dates: start: 20111213, end: 20120208
  24. AMLODIPINE BESILATE [Suspect]
     Dosage: 5 MG, 1X/DAY
     Dates: start: 20120117, end: 20120131
  25. VALPROATE SODIUM [Concomitant]
     Dosage: UNK
     Dates: start: 20111213, end: 20120208
  26. OTOMIZE [Concomitant]
     Dosage: UNK
     Dates: start: 20111114, end: 20111205
  27. GLYCERYL TRINITRATE [Concomitant]
     Dosage: UNK
     Dates: start: 20111025, end: 20111209
  28. PARACETAMOL [Concomitant]
     Dosage: UNK
     Dates: start: 20111213, end: 20120208

REACTIONS (1)
  - EPILEPSY [None]
